FAERS Safety Report 18247495 (Version 1)
Quarter: 2020Q3

REPORT INFORMATION
  Report Type: Spontaneous
  Country: US (occurrence: US)
  Receive Date: 20200909
  Receipt Date: 20200909
  Transmission Date: 20201103
  Serious: No
  Sender: FDA-Public Use
  Company Number: US-NEPHRON STERILE COMPOUNDING CENTER-2089535

PATIENT
  Age: 31 Year
  Sex: Female
  Weight: 120 kg

DRUGS (7)
  1. TYLENOL [Concomitant]
     Active Substance: ACETAMINOPHEN
     Route: 048
  2. MORPHINE SULFATE. [Suspect]
     Active Substance: MORPHINE SULFATE
     Indication: CAESAREAN SECTION
     Route: 037
     Dates: start: 20200827, end: 20200827
  3. BUPIVACAINE. [Concomitant]
     Active Substance: BUPIVACAINE
     Route: 039
     Dates: start: 20200827, end: 20200827
  4. ATROPINE. [Concomitant]
     Active Substance: ATROPINE
     Route: 037
     Dates: start: 20200827, end: 20200827
  5. CEFAZOLIN SODIUM. [Concomitant]
     Active Substance: CEFAZOLIN SODIUM
     Route: 040
  6. DECADRON [Concomitant]
     Active Substance: DEXAMETHASONE
     Route: 040
  7. SEVOFLURANE. [Concomitant]
     Active Substance: SEVOFLURANE
     Route: 055
     Dates: start: 20200827, end: 20200827

REACTIONS (1)
  - Sedation complication [Recovered/Resolved]

NARRATIVE: CASE EVENT DATE: 20200827
